FAERS Safety Report 25636325 (Version 2)
Quarter: 2025Q3

REPORT INFORMATION
  Report Type: Report from Study
  Country: US (occurrence: US)
  Receive Date: 20250803
  Receipt Date: 20250827
  Transmission Date: 20251020
  Serious: Yes (Hospitalization)
  Sender: ABBVIE
  Company Number: US-ABBVIE-6396562

PATIENT
  Age: 31 Year
  Sex: Male

DRUGS (1)
  1. SKYRIZI [Suspect]
     Active Substance: RISANKIZUMAB-RZAA
     Indication: Crohn^s disease
     Route: 058
     Dates: start: 20240903, end: 20250131

REACTIONS (3)
  - Intestinal obstruction [Recovered/Resolved]
  - Gastrointestinal inflammation [Unknown]
  - Adhesion [Unknown]

NARRATIVE: CASE EVENT DATE: 20250716
